FAERS Safety Report 21989459 (Version 1)
Quarter: 2023Q1

REPORT INFORMATION
  Report Type: Spontaneous
  Country: US (occurrence: US)
  Receive Date: 20230214
  Receipt Date: 20230214
  Transmission Date: 20230417
  Serious: Yes (Death, Other)
  Sender: FDA-Public Use
  Company Number: US-AMGEN-USASP2023022217

PATIENT

DRUGS (8)
  1. CARFILZOMIB [Suspect]
     Active Substance: CARFILZOMIB
     Indication: Lymphoplasmacytoid lymphoma/immunocytoma
     Dosage: UNK
     Route: 065
  2. CARFILZOMIB [Suspect]
     Active Substance: CARFILZOMIB
     Indication: Off label use
  3. CYCLOPHOSPHAMIDE [Concomitant]
     Active Substance: CYCLOPHOSPHAMIDE
     Indication: Lymphoplasmacytoid lymphoma/immunocytoma
     Dosage: UNK
  4. DEXAMETHASONE [Concomitant]
     Active Substance: DEXAMETHASONE
     Indication: Lymphoplasmacytoid lymphoma/immunocytoma
     Dosage: UNK
  5. RITUXIMAB [Concomitant]
     Active Substance: RITUXIMAB
     Indication: Lymphoplasmacytoid lymphoma/immunocytoma
     Dosage: UNK
  6. BORTEZOMIB [Concomitant]
     Active Substance: BORTEZOMIB
     Indication: Lymphoplasmacytoid lymphoma/immunocytoma
     Dosage: UNK
  7. LENALIDOMIDE [Concomitant]
     Active Substance: LENALIDOMIDE
     Indication: Lymphoplasmacytoid lymphoma/immunocytoma
     Dosage: UNK
  8. DARATUMUMAB [Concomitant]
     Active Substance: DARATUMUMAB
     Indication: Lymphoplasmacytoid lymphoma/immunocytoma
     Dosage: UNK

REACTIONS (14)
  - Death [Fatal]
  - Lymphoplasmacytoid lymphoma/immunocytoma recurrent [Unknown]
  - Thrombocytopenia [Unknown]
  - Acute myeloid leukaemia [Unknown]
  - Renal impairment [Unknown]
  - Anaemia [Unknown]
  - Lymphocytosis [Unknown]
  - Gene mutation [Unknown]
  - Leukocytosis [Unknown]
  - Beta 2 microglobulin increased [Unknown]
  - Blood lactate dehydrogenase increased [Unknown]
  - Lung disorder [Unknown]
  - Cytogenetic abnormality [Unknown]
  - Off label use [Unknown]
